FAERS Safety Report 4509210-6 (Version None)
Quarter: 2004Q4

REPORT INFORMATION
  Report Type: 
  Country: None (occurrence: None)
  Receive Date: 20041025
  Receipt Date: 20031010
  Transmission Date: 20050328
  Serious: Yes (Hospitalization, Other)
  Sender: FDA-Public Use
  Company Number: NSADSS2001035517

PATIENT
  Age: 39 Year
  Sex: Female
  Weight: 108.8633 kg

DRUGS (5)
  1. REMICADE [Suspect]
     Indication: RHEUMATOID ARTHRITIS
     Dosage: 400 MG, 1 IN 1 AS NECESSARY, INTRAVENOUS DRIP
     Route: 041
     Dates: start: 20001101
  2. ENBREL [Suspect]
     Indication: RHEUMATOID ARTHRITIS
     Dosage: SUBCUTANEOUS
     Route: 058
  3. IMURAN (AZATHIOPRINE) UNSPECIFIED [Concomitant]
  4. ORAL CONTRACEPTIVE NOS (ORAL CONTRACEPTIVE NOS) [Concomitant]
  5. MULTIVITAMIN (MULTIVITAMINS) UNSPECIFIED [Concomitant]

REACTIONS (5)
  - BREAST NEOPLASM [None]
  - CYSTITIS [None]
  - HYPERTENSION [None]
  - HYPOTENSION [None]
  - TACHYCARDIA [None]
